FAERS Safety Report 6887749-6 (Version None)
Quarter: 2010Q3

REPORT INFORMATION
  Report Type: 
  Country: None (occurrence: None)
  Receive Date: 20100730
  Receipt Date: 20100719
  Transmission Date: 20110219
  Serious: Yes (Death, Hospitalization)
  Sender: FDA-Public Use
  Company Number: US-SANOFI-AVENTIS-2010SA029964

PATIENT
  Age: 83 Year
  Sex: Male
  Weight: 77 kg

DRUGS (9)
  1. LOVENOX [Suspect]
     Indication: THROMBOSIS PROPHYLAXIS
     Route: 065
     Dates: start: 20100501
  2. LOVENOX [Suspect]
     Route: 065
     Dates: start: 20100430, end: 20100506
  3. ASPIRIN [Concomitant]
  4. LISINOPRIL [Concomitant]
     Indication: HYPERTENSION
     Dates: start: 20100101
  5. SIMVASTATIN [Concomitant]
     Dates: start: 20100101
  6. JANUVIA [Concomitant]
     Dates: start: 20100201
  7. LASIX [Concomitant]
     Dates: start: 20100101
  8. KLOR-CON [Concomitant]
     Dates: start: 20100101
  9. COREG [Concomitant]
     Indication: HYPERTENSION
     Dates: start: 20100101

REACTIONS (7)
  - ABASIA [None]
  - CARDIO-RESPIRATORY ARREST [None]
  - FAECES DISCOLOURED [None]
  - NAUSEA [None]
  - PERITONEAL HAEMORRHAGE [None]
  - RENAL FAILURE [None]
  - RETROPERITONEAL HAEMORRHAGE [None]
